FAERS Safety Report 16697668 (Version 2)
Quarter: 2019Q3

REPORT INFORMATION
  Report Type: Spontaneous
  Country: US (occurrence: US)
  Receive Date: 20190813
  Receipt Date: 20190821
  Transmission Date: 20191004
  Serious: No
  Sender: FDA-Public Use
  Company Number: US-AMGEN-USASP2019125113

PATIENT
  Age: 82 Year
  Sex: Female
  Weight: 69.84 kg

DRUGS (1)
  1. REPATHA [Suspect]
     Active Substance: EVOLOCUMAB
     Indication: BLOOD CHOLESTEROL INCREASED
     Dosage: 140 MILLIGRAM, Q2WK
     Route: 058
     Dates: start: 20180802

REACTIONS (2)
  - Accidental exposure to product [Unknown]
  - Device failure [Unknown]

NARRATIVE: CASE EVENT DATE: 20190715
